FAERS Safety Report 5073683-3 (Version None)
Quarter: 2006Q3

REPORT INFORMATION
  Report Type: 
  Country: None (occurrence: None)
  Receive Date: 20060808
  Receipt Date: 20050114
  Transmission Date: 20061208
  Serious: No
  Sender: FDA-Public Use
  Company Number: US-AMGEN-KDL107937

PATIENT
  Sex: Female

DRUGS (1)
  1. PROCRIT [Suspect]
     Indication: ANAEMIA OF MALIGNANT DISEASE
     Route: 058

REACTIONS (6)
  - ABDOMINAL PAIN [None]
  - BRONCHITIS [None]
  - CONDITION AGGRAVATED [None]
  - DIARRHOEA [None]
  - NAUSEA [None]
  - OEDEMA PERIPHERAL [None]
